FAERS Safety Report 21993315 (Version 1)
Quarter: 2023Q1

REPORT INFORMATION
  Report Type: Spontaneous
  Country: US (occurrence: US)
  Receive Date: 20230215
  Receipt Date: 20230215
  Transmission Date: 20230418
  Serious: Yes (Hospitalization, Other)
  Sender: FDA-Public Use
  Company Number: US-BRISTOL-MYERS SQUIBB COMPANY-2023-019797

PATIENT
  Age: 54 Year
  Sex: Female
  Weight: 99.2 kg

DRUGS (42)
  1. REVLIMID [Suspect]
     Active Substance: LENALIDOMIDE
     Indication: Diffuse large B-cell lymphoma
     Dosage: DAILY
     Dates: start: 20200104
  2. REVLIMID [Suspect]
     Active Substance: LENALIDOMIDE
     Dosage: DAILY
     Dates: start: 202204, end: 202207
  3. REVLIMID [Suspect]
     Active Substance: LENALIDOMIDE
     Dosage: DAILY
     Dates: start: 202208, end: 202210
  4. REVLIMID [Suspect]
     Active Substance: LENALIDOMIDE
     Dosage: TWO WEEKS ON, ONE WEEK OFF
     Dates: start: 20230106, end: 20230203
  5. REVLIMID [Suspect]
     Active Substance: LENALIDOMIDE
     Dosage: TAKE FOR TWO WEEKS THEN ONE WEEK OFF
  6. REVLIMID [Suspect]
     Active Substance: LENALIDOMIDE
     Dosage: TAKE FOR 3 WEEKS THEN ONE WEEK OFF
  7. ELIQUIS [Suspect]
     Active Substance: APIXABAN
     Indication: Pulmonary embolism
     Route: 048
     Dates: start: 20220531
  8. SINGULAIR [Concomitant]
     Active Substance: MONTELUKAST SODIUM
     Indication: Product used for unknown indication
     Dosage: TAKE 1 TABLET (10 MG TOTAL) BY MOUTH NIGHTLY - ORAL
     Route: 048
     Dates: start: 20220214, end: 20230214
  9. SINGULAIR [Concomitant]
     Active Substance: MONTELUKAST SODIUM
     Dosage: TAKE 1 TABLET (10 MG TOTAL) BY MOUTH NIGHTLY - ORAL
     Route: 048
  10. ALBUTEROL [Concomitant]
     Active Substance: ALBUTEROL
     Indication: Product used for unknown indication
     Dosage: INHALE 2 PUFFS EVERY SIX (6) HOURS AS NEEDED. - INHALATION
     Dates: start: 20230109
  11. AUGMENTIN [Concomitant]
     Active Substance: AMOXICILLIN\CLAVULANATE POTASSIUM
     Indication: Product used for unknown indication
     Dosage: TAKE TABLET BY MOUTH EVERY TWELVE (12) HOURS FOR 8 DAYS. - ORAL
     Route: 048
     Dates: start: 20230201, end: 20230209
  12. AUGMENTIN [Concomitant]
     Active Substance: AMOXICILLIN\CLAVULANATE POTASSIUM
     Dosage: 875 -125 MG PER TABLET 1 TABLET, Q12H SCH
     Route: 048
  13. ZITHROMAX [Concomitant]
     Active Substance: AZITHROMYCIN DIHYDRATE
     Indication: Product used for unknown indication
     Dosage: DAILY
     Route: 048
  14. SYMBICORT [Concomitant]
     Active Substance: BUDESONIDE\FORMOTEROL FUMARATE DIHYDRATE
     Indication: Product used for unknown indication
     Dosage: INHALE 2 PUFFS 2 (TWO) TIMES A DAY. - INHALATION
     Dates: start: 20230109
  15. PEPCID [Concomitant]
     Active Substance: FAMOTIDINE
     Indication: Product used for unknown indication
     Dosage: TAKE I TABLET (40 MG TOTAL) BY MOUTH TWO (2) TIMES A DAY. - ORAL
     Route: 048
     Dates: start: 20221123, end: 20230131
  16. NEURONTIN [Concomitant]
     Active Substance: GABAPENTIN
     Indication: Product used for unknown indication
     Dosage: 300 MQ IN THE AM 300 MG IN THE AFTERNOON AND 600 MG NIGHTLY
     Dates: start: 20220531
  17. ROBITUSSIN (GUAIFENESIN) [Concomitant]
     Active Substance: GUAIFENESIN
     Indication: Product used for unknown indication
     Dosage: 100 MG/5 ML SYRUP, TAKE 10 ML (200 MG TOTAL) BY MOUTH EVERY TOUR (4) HOURS. - ORAL
     Route: 048
     Dates: start: 20220829
  18. COZAAR [Concomitant]
     Active Substance: LOSARTAN POTASSIUM
     Indication: Product used for unknown indication
     Dosage: TAKE 100 MG BY MOUTH DAILY. - ORAL
     Route: 048
     Dates: start: 20221226
  19. MAGNESIUM OXIDE [Concomitant]
     Active Substance: MAGNESIUM OXIDE
     Indication: Product used for unknown indication
     Dosage: 400 MG (241.3 MG ?ELEMENTAL MAGNESIUM) TABLET ?TAKE 1 TABLET (400 MG TOTAL) BY MOUTH DAILY. - ORAL
     Route: 048
     Dates: start: 20221222, end: 20221222
  20. GLUCOPHAGE [Concomitant]
     Active Substance: METFORMIN HYDROCHLORIDE
     Indication: Product used for unknown indication
     Dosage: TAKE 1 TABLET BY MOUTH TWICE DAILY WITH MEALS. HOLD FOR 2 DAYS AFTER YOUR CT SCAN. THEN ?RESTART AS
     Dates: start: 20220815
  21. SYSTANE NIGHTTIME [Concomitant]
     Active Substance: MINERAL OIL\PETROLATUM
     Indication: Product used for unknown indication
     Dosage: ADMINISTER 1 APPLICATION TO BOTH EYES EVERY TWO (2) HOURS AS NEEDED. - BOTH EYES
     Dates: start: 20211213
  22. PREPARATION H [HYDROCORTISONE] [Concomitant]
     Indication: Product used for unknown indication
     Dosage: APPLY 1 APPLICATION TOPICALLY EVERY SIX (6) HOURS AS NEEDED. - TOPICAL, BID
     Dates: start: 20221123
  23. POLYVINYL ALCOHOL\POVIDONE-IODINE [Concomitant]
     Active Substance: POLYVINYL ALCOHOL\POVIDONE-IODINE
     Indication: Product used for unknown indication
     Dosage: 0.5-0.6 % DROP. ADMINISTER 1 DROP TO BOTH EYES EVERY (F) HOURS AS NEEDED. - BOTH EYES
     Dates: start: 20220913
  24. POTASSIUM CHLORIDE [Concomitant]
     Active Substance: POTASSIUM CHLORIDE
     Indication: Product used for unknown indication
     Dosage: 10 MEQ CR TABLET ?TAKE 2 TABLETS(20 MEQ) BY MOUTH DAILY
     Route: 048
     Dates: start: 20230105
  25. SPIRIVA RESPIMAT [Concomitant]
     Active Substance: TIOTROPIUM BROMIDE
     Indication: Product used for unknown indication
     Dosage: 2.5 MCG/ACTUATION INHALATION MIST ?INHALE 2 PUFFS BY MOUTH DAILY - INHALATION
     Dates: start: 20230109
  26. DEMADEX [Concomitant]
     Active Substance: TORSEMIDE
     Indication: Product used for unknown indication
     Dosage: TAKE 1 TABLET (20 MG TOTAL) BY MOUTH DAILY. TAKE 1 TABLET(20 MG) BY MOUTH DAILY - ORAL
     Route: 048
     Dates: start: 20221205
  27. BALANCED B-50 [Concomitant]
     Indication: Product used for unknown indication
     Dosage: TAKE 1 TABLET BY MOUTH DAILY
     Route: 048
     Dates: start: 20220531
  28. TYLENOL [Concomitant]
     Active Substance: ACETAMINOPHEN
     Indication: Product used for unknown indication
     Dosage: Q6H PRN, 650 MG
     Route: 048
  29. THERATEARS [Concomitant]
     Active Substance: CARBOXYMETHYLCELLULOSE SODIUM
     Indication: Product used for unknown indication
     Dosage: 0.25% OPHTHALMIC SOLUTION 1 DROP, BOTH EYES, Q6H PRN
  30. DEXTROSE [Concomitant]
     Active Substance: DEXTROSE
     Indication: Product used for unknown indication
     Dosage: 50% IN WATER (D50W) 50% SOLUTION 12.5G, Q10 M IN PRN
     Route: 042
  31. BREO ELLIPTA [Concomitant]
     Active Substance: FLUTICASONE FUROATE\VILANTEROL TRIFENATATE
     Indication: Product used for unknown indication
     Dosage: 200-25 MCG/DOSE INHALER 1 PUFF, INHALATION, DAILY (RT)
  32. GLUCAGON [Concomitant]
     Active Substance: GLUCAGON
     Indication: Product used for unknown indication
     Dosage: ONCE PRN
     Route: 030
  33. DEXTROSE [Concomitant]
     Active Substance: DEXTROSE
     Indication: Product used for unknown indication
     Dosage: Q10 M IN PRN
     Route: 048
  34. ROBITUSSIN (GUAIFENESIN) [Concomitant]
     Active Substance: GUAIFENESIN
     Indication: Product used for unknown indication
     Dosage: Q4H PRN
     Route: 048
  35. HEPARIN [Concomitant]
     Active Substance: HEPARIN SODIUM
     Indication: Product used for unknown indication
     Dosage: 25000 UNITS/250 ML (100 UNIT/ ML) IN 5% DEXTROSE INFUSION. 12 UNITS/KG/HR.?11.86 ML/HR
     Route: 042
     Dates: start: 20230201
  36. HUMALOG [Concomitant]
     Active Substance: INSULIN LISPRO
     Indication: Product used for unknown indication
     Dosage: 0-20 UNITS
     Route: 058
  37. DUONEB [Concomitant]
     Active Substance: ALBUTEROL SULFATE\IPRATROPIUM BROMIDE
     Indication: Product used for unknown indication
     Dosage: 0.5-2.5 MG/3 ML NEBULIZER SOLUTION 3 ML, NEBULIZER, Q6H PRN
  38. MENTHOL [Concomitant]
     Active Substance: MENTHOL
     Indication: Cough
     Dosage: 1 LOZENGE, Q2H PRN
     Route: 048
  39. MYCOSTATIN [Concomitant]
     Active Substance: NYSTATIN
     Indication: Product used for unknown indication
     Dosage: POWDER 1 APPLICATION
     Route: 061
  40. MIRALAX [Concomitant]
     Active Substance: POLYETHYLENE GLYCOL 3350
     Indication: Product used for unknown indication
     Dosage: PACKET
     Route: 048
  41. SENOKOT [Concomitant]
     Active Substance: SENNOSIDES
     Indication: Product used for unknown indication
     Dosage: 2 TABLET, NIGHTLY
     Route: 048
  42. INCRUSE ELLIPTA [Concomitant]
     Active Substance: UMECLIDINIUM BROMIDE
     Indication: Product used for unknown indication
     Dosage: 62.5 MCG/ACTUATION INHALER 1 PUFF, INHALATION

REACTIONS (12)
  - Rash pruritic [Recovered/Resolved]
  - COVID-19 [Unknown]
  - Pneumonia [Unknown]
  - Cytopenia [Unknown]
  - Dyspnoea [Unknown]
  - Obliterative bronchiolitis [Unknown]
  - Cough [Unknown]
  - Haemoptysis [Unknown]
  - Obstructive sleep apnoea syndrome [Unknown]
  - Off label use [Unknown]
  - Condition aggravated [Unknown]
  - Gastritis [Unknown]
